FAERS Safety Report 4299706-7 (Version None)
Quarter: 2004Q1

REPORT INFORMATION
  Report Type: 
  Country: None (occurrence: None)
  Receive Date: 20040126
  Receipt Date: 20031111
  Transmission Date: 20041129
  Serious: No
  Sender: FDA-Public Use
  Company Number: USA031152209

PATIENT
  Age: 17 Year
  Sex: Female

DRUGS (2)
  1. STRATTERA [Suspect]
     Dosage: 40 MG/1 DAY
     Dates: start: 20031001
  2. PAXIL [Concomitant]

REACTIONS (3)
  - DRUG INTERACTION [None]
  - SWOLLEN TONGUE [None]
  - TREMOR [None]
